FAERS Safety Report 15048588 (Version 1)
Quarter: 2018Q2

REPORT INFORMATION
  Report Type: Spontaneous
  Country: JP (occurrence: JP)
  Receive Date: 20180622
  Receipt Date: 20180622
  Transmission Date: 20180711
  Serious: Yes (Hospitalization, Other)
  Sender: FDA-Public Use
  Company Number: JP-ABBVIE-18S-087-2392419-00

PATIENT

DRUGS (10)
  1. PASETOCIN [Suspect]
     Active Substance: AMOXICILLIN
     Indication: NASOPHARYNGITIS
     Route: 048
  2. ANHIBA [Concomitant]
     Active Substance: ACETAMINOPHEN
     Indication: PYREXIA
     Dosage: PRN
     Route: 054
     Dates: start: 20180507, end: 20180509
  3. MUCODYNE [Concomitant]
     Active Substance: CARBOCYSTEINE
     Indication: NASOPHARYNGITIS
     Route: 048
  4. KLARICID [Suspect]
     Active Substance: CLARITHROMYCIN
     Dosage: 200 MG, QD
     Route: 048
     Dates: start: 20180507, end: 20180509
  5. BIOFERMIN R [Concomitant]
     Active Substance: BACILLUS SUBTILIS\LACTOBACILLUS ACIDOPHILUS\STREPTOCOCCUS FAECAIS
     Indication: NASOPHARYNGITIS
     Route: 048
  6. AMBROXOL HYDROCHLORIDE [Concomitant]
     Active Substance: AMBROXOL HYDROCHLORIDE
     Indication: PRODUCTIVE COUGH
     Route: 048
     Dates: start: 20180507, end: 20180509
  7. KLARICID [Suspect]
     Active Substance: CLARITHROMYCIN
     Indication: BRONCHITIS
     Dosage: UNK
     Route: 048
  8. CHLORPHENIRAMINE. [Concomitant]
     Active Substance: CHLORPHENIRAMINE
     Indication: RHINITIS
     Route: 048
     Dates: start: 20180507, end: 20180509
  9. ZESULAN [Concomitant]
     Active Substance: MEQUITAZINE
     Indication: NASOPHARYNGITIS
     Route: 048
  10. ASVERIN (TIPEPIDINE HIBENZATE) [Concomitant]
     Active Substance: TIPEPIDINE HIBENZATE
     Indication: NASOPHARYNGITIS
     Route: 048

REACTIONS (3)
  - Pyrexia [Recovered/Resolved]
  - Pruritus [Recovered/Resolved]
  - Erythema multiforme [Recovering/Resolving]

NARRATIVE: CASE EVENT DATE: 20180512
